FAERS Safety Report 9603353 (Version 1)
Quarter: 2013Q4

REPORT INFORMATION
  Report Type: Spontaneous
  Country: US (occurrence: US)
  Receive Date: 20131007
  Receipt Date: 20131007
  Transmission Date: 20140711
  Serious: Yes (Other)
  Sender: FDA-Public Use
  Company Number: US-EISAI INC-E2020-12954-SPO-US

PATIENT
  Age: 44 Year
  Sex: Male

DRUGS (2)
  1. DONEPEZIL [Suspect]
     Indication: DEMENTIA
     Dosage: UNKNOWN
     Route: 048
  2. DONEPEZIL [Suspect]
     Route: 048

REACTIONS (2)
  - Delirium [Recovering/Resolving]
  - Dementia [Recovering/Resolving]
